FAERS Safety Report 21886842 (Version 1)
Quarter: 2023Q1

REPORT INFORMATION
  Report Type: Spontaneous
  Country: US (occurrence: US)
  Receive Date: 20230119
  Receipt Date: 20230119
  Transmission Date: 20230417
  Serious: No
  Sender: FDA-Public Use
  Company Number: US-MYLANLABS-2022M1129415

PATIENT
  Age: 87 Year
  Sex: Female
  Weight: 53.07 kg

DRUGS (2)
  1. GABAPENTIN [Suspect]
     Active Substance: GABAPENTIN
     Indication: Hypoaesthesia
     Dosage: UNK UNK, QD
     Route: 065
  2. TYROSINE [Concomitant]
     Active Substance: TYROSINE
     Indication: Thyroid disorder
     Dosage: 88 MILLIGRAM, AM (BEFORE MEAL)
     Route: 065

REACTIONS (5)
  - Hypoaesthesia [Unknown]
  - Speech disorder [Unknown]
  - Swelling face [Unknown]
  - Swollen tongue [Unknown]
  - Drug hypersensitivity [Unknown]

NARRATIVE: CASE EVENT DATE: 20210511
